FAERS Safety Report 5431070-X (Version None)
Quarter: 2007Q3

REPORT INFORMATION
  Report Type: 
  Country: None (occurrence: None)
  Receive Date: 20070830
  Receipt Date: 20070201
  Transmission Date: 20080115
  Serious: No
  Sender: FDA-Public Use
  Company Number: A0637986A

PATIENT
  Age: 76 Year
  Sex: Female

DRUGS (7)
  1. WELLBUTRIN XL [Suspect]
     Indication: DRUG USE FOR UNKNOWN INDICATION
     Dosage: 150MG PER DAY
     Route: 048
  2. CYMBALTA [Concomitant]
  3. NEURONTIN [Concomitant]
  4. EFFEXOR [Concomitant]
  5. VITAMIN [Concomitant]
  6. PRILOSEC [Concomitant]
  7. MIACALCIN [Concomitant]

REACTIONS (2)
  - HEADACHE [None]
  - NAUSEA [None]
